FAERS Safety Report 9410749 (Version 4)
Quarter: 2014Q3

REPORT INFORMATION
  Report Type: Report from Study
  Country: IT (occurrence: IT)
  Receive Date: 20130719
  Receipt Date: 20140711
  Transmission Date: 20150326
  Serious: Yes (Other)
  Sender: FDA-Public Use
  Company Number: IT-EXELIXIS-XL18413002991

PATIENT
  Age: 77 Year
  Sex: Male
  Weight: 98 kg

DRUGS (8)
  1. DIGOXINA [Concomitant]
     Active Substance: DIGOXIN
  2. XL184 [Suspect]
     Active Substance: CABOZANTINIB
     Indication: PROSTATE CANCER
     Dosage: 60 MG, QD
     Route: 048
     Dates: start: 20130703, end: 20130713
  3. HYDROMORPHONE [Concomitant]
     Active Substance: HYDROMORPHONE
  4. OMEPRAZOLE. [Concomitant]
     Active Substance: OMEPRAZOLE
  5. HUMALOG [Concomitant]
     Active Substance: INSULIN LISPRO
  6. TRAZODONE [Concomitant]
     Active Substance: TRAZODONE HYDROCHLORIDE
  7. SELEPARINA [Concomitant]
     Active Substance: NADROPARIN CALCIUM
  8. XL184 [Suspect]
     Active Substance: CABOZANTINIB
     Indication: PROSTATE CANCER
     Dosage: 5 MG, BID
     Route: 048
     Dates: start: 20130703, end: 20130713

REACTIONS (1)
  - Dyspnoea [Recovered/Resolved]

NARRATIVE: CASE EVENT DATE: 20130713
